FAERS Safety Report 10331250 (Version 1)
Quarter: 2014Q3

REPORT INFORMATION
  Report Type: Spontaneous
  Country: US (occurrence: None)
  Receive Date: 20140721
  Receipt Date: 20140721
  Transmission Date: 20150326
  Serious: Yes (Death, Hospitalization)
  Sender: FDA-Public Use
  Company Number: None

PATIENT
  Age: 67 Year
  Sex: Male
  Weight: 62 kg

DRUGS (4)
  1. METHOTREXATE [Suspect]
     Active Substance: METHOTREXATE
  2. DOXORUBICIN HYDROCHLORIDE. [Suspect]
     Active Substance: DOXORUBICIN HYDROCHLORIDE
  3. ETOPOSIDE (VP-16) [Suspect]
     Active Substance: ETOPOSIDE
  4. VINCRISTINE SULFATE. [Suspect]
     Active Substance: VINCRISTINE SULFATE

REACTIONS (23)
  - Haemodialysis [None]
  - Cardiac arrest [None]
  - Renal failure acute [None]
  - Hepatic function abnormal [None]
  - Thrombocytopenia [None]
  - Candida infection [None]
  - Enterococcal infection [None]
  - Mental status changes [None]
  - Hypotension [None]
  - Blood culture positive [None]
  - Abdominal pain [None]
  - Cholecystitis [None]
  - Metabolic acidosis [None]
  - Tumour lysis syndrome [None]
  - Lacunar infarction [None]
  - Weight decreased [None]
  - Night sweats [None]
  - Vomiting [None]
  - International normalised ratio increased [None]
  - Coagulopathy [None]
  - Fatigue [None]
  - Pyrexia [None]
  - Hypoglycaemia [None]

NARRATIVE: CASE EVENT DATE: 20140712
